FAERS Safety Report 18471828 (Version 1)
Quarter: 2020Q4

REPORT INFORMATION
  Report Type: Report from Study
  Country: IT (occurrence: IT)
  Receive Date: 20201105
  Receipt Date: 20201105
  Transmission Date: 20210114
  Serious: Yes (Other)
  Sender: FDA-Public Use
  Company Number: IT-UNICHEM PHARMACEUTICALS (USA) INC-UCM202010-001286

PATIENT
  Age: 18 Year
  Sex: Female
  Weight: 60 kg

DRUGS (8)
  1. CLOBAZAM. [Concomitant]
     Active Substance: CLOBAZAM
     Indication: SEIZURE
  2. DIVALPROEX SODIUM. [Suspect]
     Active Substance: DIVALPROEX SODIUM
     Indication: SEIZURE
  3. CANNABIDIOL [Suspect]
     Active Substance: CANNABIDIOL
  4. CANNABIDIOL [Suspect]
     Active Substance: CANNABIDIOL
     Dosage: MAINTENANCE DOSE
  5. STIRIPENTOL [Concomitant]
     Active Substance: STIRIPENTOL
     Indication: SEIZURE
  6. CANNABIDIOL [Suspect]
     Active Substance: CANNABIDIOL
     Indication: SEIZURE
     Route: 048
     Dates: start: 201901
  7. CANNABIDIOL [Suspect]
     Active Substance: CANNABIDIOL
  8. DIVALPROEX SODIUM. [Suspect]
     Active Substance: DIVALPROEX SODIUM

REACTIONS (6)
  - Aspartate aminotransferase increased [Recovering/Resolving]
  - Drug level increased [Recovering/Resolving]
  - Therapy non-responder [Unknown]
  - Alanine aminotransferase increased [Recovering/Resolving]
  - Platelet count decreased [Recovering/Resolving]
  - Drug interaction [Unknown]

NARRATIVE: CASE EVENT DATE: 201902
